FAERS Safety Report 5121529-7 (Version None)
Quarter: 2006Q4

REPORT INFORMATION
  Report Type: 
  Country: None (occurrence: None)
  Receive Date: 20061006
  Receipt Date: 20060925
  Transmission Date: 20070319
  Serious: Yes (Hospitalization)
  Sender: FDA-Public Use
  Company Number: FR-SANOFI-SYNTHELABO-A02200602432

PATIENT
  Sex: Male
  Weight: 3.4 kg

DRUGS (6)
  1. ZYPREXA [Suspect]
     Indication: PSYCHOTIC DISORDER
     Dosage: UNK
     Route: 064
     Dates: end: 20060704
  2. DEROXAT [Suspect]
     Indication: PSYCHOTIC DISORDER
     Dosage: UNK
     Route: 064
     Dates: end: 20060704
  3. SERESTA [Suspect]
     Indication: PSYCHOTIC DISORDER
     Dosage: UNK
     Route: 064
  4. NOZINAN [Suspect]
     Indication: PSYCHOTIC DISORDER
     Dosage: UNK
     Route: 064
     Dates: end: 20060704
  5. ZOLPIDEM TARTRATE [Suspect]
     Indication: INSOMNIA
     Dosage: UNK
     Route: 064
     Dates: end: 20060704
  6. GENERAL ANESTHESIC NOS [Concomitant]
     Indication: GENERAL ANAESTHESIA
     Dosage: UNK
     Route: 064
     Dates: start: 20060704, end: 20060704

REACTIONS (5)
  - BRADYCARDIA NEONATAL [None]
  - CAESAREAN SECTION [None]
  - DRUG EXPOSURE DURING PREGNANCY [None]
  - NEONATAL RESPIRATORY DISTRESS SYNDROME [None]
  - SOMNOLENCE NEONATAL [None]
